FAERS Safety Report 18481526 (Version 1)
Quarter: 2020Q4

REPORT INFORMATION
  Report Type: Report from Study
  Country: DE (occurrence: DE)
  Receive Date: 20201109
  Receipt Date: 20201109
  Transmission Date: 20210114
  Serious: Yes (Death, Hospitalization, Other)
  Sender: FDA-Public Use
  Company Number: NVSC2020DE290385

PATIENT
  Sex: Female

DRUGS (5)
  1. BEVACIZUMAB. [Concomitant]
     Active Substance: BEVACIZUMAB
     Indication: PRODUCT USED FOR UNKNOWN INDICATION
     Dosage: 400 MG EVERY 2ND WEEK
     Route: 065
     Dates: start: 20200302
  2. KISQALI [Suspect]
     Active Substance: RIBOCICLIB
     Indication: BREAST CANCER METASTATIC
     Dosage: 600 MG, QD (SCHEMA 21 DAYS INTAKE, 7 DAYS PAUSE)
     Route: 048
     Dates: start: 20190529, end: 20190625
  3. KISQALI [Suspect]
     Active Substance: RIBOCICLIB
     Dosage: 400 MG, QD (SCHEMA 21 DAYS INTAKE, 7 DAYS PAUSE)
     Route: 048
     Dates: start: 20190703, end: 20200127
  4. DOXORUBICIN [Concomitant]
     Active Substance: DOXORUBICIN
     Indication: PRODUCT USED FOR UNKNOWN INDICATION
     Dosage: 30 MG EVERY 2ND WEEK LAST DOSE BEFORE SAE 03 AUUG 2020
     Route: 065
  5. FULVESTRANT. [Suspect]
     Active Substance: FULVESTRANT
     Indication: BREAST CANCER METASTATIC
     Dosage: 500 MG (DAILY DOSE) Q4W
     Route: 030
     Dates: start: 20190529, end: 20200106

REACTIONS (4)
  - Pulmonary artery thrombosis [Unknown]
  - Dyspnoea [Unknown]
  - Acute respiratory distress syndrome [Fatal]
  - Pyrexia [Unknown]

NARRATIVE: CASE EVENT DATE: 20200819
